FAERS Safety Report 21188021 (Version 4)
Quarter: 2022Q4

REPORT INFORMATION
  Report Type: Other
  Country: JP (occurrence: JP)
  Receive Date: 20220809
  Receipt Date: 20221128
  Transmission Date: 20230112
  Serious: Yes (Other)
  Sender: FDA-Public Use
  Company Number: JP-CHUGAI-2022013228

PATIENT
  Age: 49 Year
  Sex: Female
  Weight: 72 kg

DRUGS (7)
  1. ATEZOLIZUMAB [Suspect]
     Active Substance: ATEZOLIZUMAB
     Indication: Lung adenocarcinoma
     Dosage: 1200 MILLIGRAM
     Route: 041
     Dates: start: 20211227, end: 20220228
  2. PACLITAXEL [Suspect]
     Active Substance: PACLITAXEL
     Indication: Lung adenocarcinoma
     Dosage: 310 MILLIGRAM
     Route: 041
     Dates: start: 20211227
  3. PACLITAXEL [Suspect]
     Active Substance: PACLITAXEL
     Dosage: MOST RECENT DOSE : 28/FEB/2022
     Route: 041
     Dates: start: 20220228
  4. OXYCODONE HYDROCHLORIDE [Suspect]
     Active Substance: OXYCODONE HYDROCHLORIDE
     Indication: Product used for unknown indication
     Dosage: UNK
     Route: 065
  5. BEVACIZUMAB [Suspect]
     Active Substance: BEVACIZUMAB
     Indication: Lung adenocarcinoma
     Route: 041
     Dates: start: 20211227, end: 20220228
  6. CARBOPLATIN [Concomitant]
     Active Substance: CARBOPLATIN
     Indication: Lung adenocarcinoma
     Dosage: 480 MILLIGRAM
     Route: 041
     Dates: start: 20211227, end: 20220228
  7. BEVACIZUMAB [Concomitant]
     Active Substance: BEVACIZUMAB
     Indication: Lung adenocarcinoma
     Dosage: 800 MILLIGRAM
     Route: 041
     Dates: start: 20211227, end: 20220228

REACTIONS (5)
  - Renal disorder [Not Recovered/Not Resolved]
  - Alanine aminotransferase increased [Recovered/Resolved]
  - Rash maculo-papular [Recovered/Resolved]
  - Peripheral sensory neuropathy [Recovered/Resolved]
  - Constipation [Not Recovered/Not Resolved]

NARRATIVE: CASE EVENT DATE: 20211230
